FAERS Safety Report 6985631-7 (Version None)
Quarter: 2010Q3

REPORT INFORMATION
  Report Type: 
  Country: None (occurrence: None)
  Receive Date: 20100915
  Receipt Date: 20100907
  Transmission Date: 20110219
  Serious: Yes (Other)
  Sender: FDA-Public Use
  Company Number: US-JNJFOC-20100903074

PATIENT
  Sex: Female
  Weight: 104.33 kg

DRUGS (2)
  1. FENTANYL CITRATE [Suspect]
     Indication: ARTHRITIS
     Route: 062
  2. CARAFATE [Concomitant]
     Indication: OESOPHAGEAL ULCER
     Route: 048

REACTIONS (4)
  - APPLICATION SITE PRURITUS [None]
  - APPLICATION SITE URTICARIA [None]
  - PRODUCT ADHESION ISSUE [None]
  - THYROID DISORDER [None]
